FAERS Safety Report 9309967 (Version 2)
Quarter: 2013Q2

REPORT INFORMATION
  Report Type: Spontaneous
  Country: JP (occurrence: JP)
  Receive Date: 20130527
  Receipt Date: 20130621
  Transmission Date: 20140414
  Serious: Yes (Other)
  Sender: FDA-Public Use
  Company Number: JP-PFIZER INC-2013160837

PATIENT
  Age: 73 Year
  Sex: Female

DRUGS (9)
  1. LIPITOR [Suspect]
     Indication: DYSLIPIDAEMIA
     Dosage: 10 MG, 1X/DAY
     Route: 048
     Dates: start: 201305, end: 201305
  2. BETAHISTINE MESILATE [Suspect]
     Dosage: 18 MG, DAILY
     Route: 048
     Dates: start: 201305, end: 201305
  3. ALDACTONE-A [Concomitant]
     Dosage: UNK
     Route: 048
  4. BAYASPIRIN [Concomitant]
     Dosage: UNK
  5. FUROSEMIDE [Concomitant]
     Dosage: UNK
     Route: 048
  6. SHAKUYAKU-KANZO-TO [Concomitant]
     Dosage: UNK
     Route: 048
  7. AMARYL [Concomitant]
     Dosage: UNK
  8. TAKEPRON [Concomitant]
     Dosage: UNK
     Route: 048
  9. JANUVIA [Concomitant]
     Dosage: UNK

REACTIONS (1)
  - Hypoglycaemia [Recovered/Resolved]
